FAERS Safety Report 9149348 (Version 1)
Quarter: 2013Q1

REPORT INFORMATION
  Report Type: Spontaneous
  Country: FR (occurrence: FR)
  Receive Date: 20130308
  Receipt Date: 20130308
  Transmission Date: 20140127
  Serious: Yes (Hospitalization)
  Sender: FDA-Public Use
  Company Number: FR-BRISTOL-MYERS SQUIBB COMPANY-17443508

PATIENT
  Age: 66 Year
  Sex: Male

DRUGS (14)
  1. GLUCOPHAGE TABS 500 MG [Suspect]
     Route: 048
     Dates: start: 20121012, end: 20121110
  2. TAHOR [Suspect]
     Dosage: 40 MG ORAL TABS
     Route: 048
     Dates: start: 20120927, end: 20121205
  3. ATROVENT [Suspect]
     Route: 055
     Dates: start: 20121020, end: 20121201
  4. DOLIPRANE [Suspect]
     Dosage: 500 MG TABS
     Route: 048
     Dates: start: 20121119, end: 20121206
  5. ATARAX [Suspect]
     Route: 048
     Dates: start: 20121122, end: 20121202
  6. MIANSERIN [Suspect]
     Dosage: TABS
     Route: 048
     Dates: start: 20121203, end: 20121205
  7. ECONAZOLE [Suspect]
     Route: 061
     Dates: start: 20121103, end: 20121121
  8. TRANSIPEG [Suspect]
     Dosage: POWDER FOR ORAL SOLN
     Route: 048
     Dates: start: 20121109, end: 20121121
  9. UMULINE [Suspect]
     Dosage: SOLN FOR INJECTION
     Route: 058
     Dates: start: 20120927, end: 20121127
  10. KARDEGIC [Concomitant]
  11. LOVENOX [Concomitant]
  12. INEXIUM [Concomitant]
     Dosage: TABS
     Route: 048
  13. PROZAC [Concomitant]
  14. EDUCTYL [Concomitant]

REACTIONS (1)
  - Hepatitis [Recovering/Resolving]
